FAERS Safety Report 20350249 (Version 3)
Quarter: 2022Q4

REPORT INFORMATION
  Report Type: Spontaneous
  Country: US (occurrence: US)
  Receive Date: 20220119
  Receipt Date: 20221114
  Transmission Date: 20230113
  Serious: Yes (Other)
  Sender: FDA-Public Use
  Company Number: US-GILEAD-2022-0565665

PATIENT
  Age: 59 Year
  Sex: Male
  Weight: 87.075 kg

DRUGS (50)
  1. ATRIPLA [Suspect]
     Active Substance: EFAVIRENZ\EMTRICITABINE\TENOFOVIR DISOPROXIL FUMARATE
     Indication: HIV infection
     Dosage: UNK
     Route: 048
     Dates: start: 2010
  2. TRUVADA [Suspect]
     Active Substance: EMTRICITABINE\TENOFOVIR DISOPROXIL FUMARATE
     Indication: HIV infection
     Dosage: UNK
     Route: 048
     Dates: start: 2010
  3. TRUVADA [Suspect]
     Active Substance: EMTRICITABINE\TENOFOVIR DISOPROXIL FUMARATE
     Dosage: UNK
     Route: 065
     Dates: start: 2012, end: 201607
  4. NORVIR [Concomitant]
     Active Substance: RITONAVIR
  5. PREZISTA [Concomitant]
     Active Substance: DARUNAVIR ETHANOLATE
  6. REYATAZ [Concomitant]
     Active Substance: ATAZANAVIR SULFATE
  7. TRIUMEQ [Concomitant]
     Active Substance: ABACAVIR SULFATE\DOLUTEGRAVIR SODIUM\LAMIVUDINE
  8. DOVATO [Concomitant]
     Active Substance: DOLUTEGRAVIR SODIUM\LAMIVUDINE
  9. BACTRIUM [Concomitant]
  10. TAB-A-VITE [Concomitant]
  11. AMMONIUM LACTATE [Concomitant]
     Active Substance: AMMONIUM LACTATE
  12. RANITIDINE [Concomitant]
     Active Substance: RANITIDINE
  13. PROAIR HFA [Concomitant]
     Active Substance: ALBUTEROL SULFATE
  14. LORATADINE [Concomitant]
     Active Substance: LORATADINE
  15. VITAMINS [Concomitant]
     Active Substance: VITAMINS
  16. POLYETHYLENE GLYCOL [Concomitant]
     Active Substance: POLYETHYLENE GLYCOL
  17. ASPIRIN [Concomitant]
     Active Substance: ASPIRIN
  18. DOCQLACE [Concomitant]
     Active Substance: DOCUSATE SODIUM
  19. REGULOID [Concomitant]
     Active Substance: PSYLLIUM HUSK
  20. AZITHROMYCIN [Concomitant]
     Active Substance: AZITHROMYCIN
  21. ATORVASTATIN [Concomitant]
     Active Substance: ATORVASTATIN
  22. ECONAZOLE [Concomitant]
     Active Substance: ECONAZOLE
  23. HALOBETASOL PROPIONATE [Concomitant]
     Active Substance: HALOBETASOL PROPIONATE
  24. FLUOCINONIDE [Concomitant]
     Active Substance: FLUOCINONIDE
  25. PSYLLIUM [Concomitant]
     Active Substance: PLANTAGO SEED
  26. CYANOCOBALAMIN [Concomitant]
     Active Substance: CYANOCOBALAMIN
  27. MAALOX ANTACID [Concomitant]
     Active Substance: ALUMINUM HYDROXIDE\DIMETHICONE\MAGNESIUM HYDROXIDE
  28. SENOKOT [Concomitant]
     Active Substance: SENNOSIDES
  29. BISACODYL [Concomitant]
     Active Substance: BISACODYL
  30. HEPARIN [Concomitant]
     Active Substance: HEPARIN SODIUM
  31. SODIUM CHLORIDE [Concomitant]
     Active Substance: SODIUM CHLORIDE
  32. CETIRIZINE [Concomitant]
     Active Substance: CETIRIZINE HYDROCHLORIDE
  33. DEXTRAN [Concomitant]
     Active Substance: DEXTRAN
  34. PRAVASTATIN [Concomitant]
     Active Substance: PRAVASTATIN
  35. BENZONATATE [Concomitant]
     Active Substance: BENZONATATE
  36. BUDESONIDE [Concomitant]
     Active Substance: BUDESONIDE
  37. FLUTICASONE [Concomitant]
     Active Substance: FLUTICASONE
  38. GERI-TUSSIN EXPECTORANT [Concomitant]
     Active Substance: GUAIFENESIN
  39. PREDNISONE [Concomitant]
     Active Substance: PREDNISONE
  40. UMECLIDINIUM [Concomitant]
     Active Substance: UMECLIDINIUM
  41. FLOMAX [Concomitant]
     Active Substance: TAMSULOSIN HYDROCHLORIDE
  42. CICLOPIROX [Concomitant]
     Active Substance: CICLOPIROX
  43. MONTELUKAST [Concomitant]
     Active Substance: MONTELUKAST SODIUM
  44. CYCLOBENZAPRINE [Concomitant]
     Active Substance: CYCLOBENZAPRINE
  45. DICLOFENAC [Concomitant]
     Active Substance: DICLOFENAC
  46. FAMOTIDINE [Concomitant]
     Active Substance: FAMOTIDINE
  47. MINERALS\VITAMINS [Concomitant]
     Active Substance: MINERALS\VITAMINS
  48. IRON [Concomitant]
     Active Substance: IRON
  49. HERBALS [Concomitant]
     Active Substance: HERBALS
  50. VITAMIN D [Concomitant]
     Active Substance: VITAMIN D NOS

REACTIONS (26)
  - Renal impairment [Unknown]
  - Chronic kidney disease [Not Recovered/Not Resolved]
  - Coronary artery disease [Not Recovered/Not Resolved]
  - Pain [Not Recovered/Not Resolved]
  - Emotional distress [Not Recovered/Not Resolved]
  - Anxiety [Not Recovered/Not Resolved]
  - Anhedonia [Not Recovered/Not Resolved]
  - Hypertension [Not Recovered/Not Resolved]
  - Bronchitis chronic [Not Recovered/Not Resolved]
  - Gout [Not Recovered/Not Resolved]
  - Fatigue [Not Recovered/Not Resolved]
  - Back pain [Not Recovered/Not Resolved]
  - Haematuria [Not Recovered/Not Resolved]
  - Nausea [Not Recovered/Not Resolved]
  - Chest pain [Not Recovered/Not Resolved]
  - Joint swelling [Not Recovered/Not Resolved]
  - Peripheral swelling [Not Recovered/Not Resolved]
  - Headache [Not Recovered/Not Resolved]
  - Eye irritation [Not Recovered/Not Resolved]
  - Pain in extremity [Not Recovered/Not Resolved]
  - Hypoaesthesia [Not Recovered/Not Resolved]
  - Impaired work ability [Not Recovered/Not Resolved]
  - Dysstasia [Not Recovered/Not Resolved]
  - Decreased activity [Not Recovered/Not Resolved]
  - Fear [Not Recovered/Not Resolved]
  - Dyspnoea [Not Recovered/Not Resolved]

NARRATIVE: CASE EVENT DATE: 20150701
